FAERS Safety Report 7285453-6 (Version None)
Quarter: 2011Q1

REPORT INFORMATION
  Report Type: 
  Country: None (occurrence: None)
  Receive Date: 20110210
  Receipt Date: 20110201
  Transmission Date: 20110831
  Serious: Yes (Hospitalization, Other)
  Sender: FDA-Public Use
  Company Number: US-BAYER-2011-007061

PATIENT
  Sex: Female

DRUGS (4)
  1. FISH OIL [Concomitant]
  2. BETASERON [Suspect]
     Indication: MULTIPLE SCLEROSIS
     Dosage: 6 MIU, QOD
     Route: 058
     Dates: start: 20101119, end: 20110117
  3. VITAMIN D [Concomitant]
  4. CALCIUM [CALCIUM] [Concomitant]

REACTIONS (3)
  - ABDOMINAL PAIN [None]
  - FALLOPIAN TUBE DISORDER [None]
  - ECTOPIC PREGNANCY [None]
